FAERS Safety Report 12375268 (Version 1)
Quarter: 2016Q2

REPORT INFORMATION
  Report Type: Spontaneous
  Country: US (occurrence: None)
  Receive Date: 20160516
  Receipt Date: 20160516
  Transmission Date: 20160815
  Serious: Yes (Life-Threatening, Hospitalization, Disabling)
  Sender: FDA-Public Use
  Company Number: None

PATIENT
  Age: 15 Year
  Sex: Female
  Weight: 53.52 kg

DRUGS (5)
  1. HYDROXYUREA. [Concomitant]
     Active Substance: HYDROXYUREA
  2. DEPO-PROVERA [Suspect]
     Active Substance: MEDROXYPROGESTERONE ACETATE
     Indication: SICKLE CELL ANAEMIA
     Dosage: EVERY 3 MONTHS GIVEN INTO/UNDER THE SKIN
     Route: 058
     Dates: start: 20151005, end: 20151222
  3. FOLIC ACID. [Concomitant]
     Active Substance: FOLIC ACID
  4. MULTIVITAMIN [Concomitant]
     Active Substance: VITAMINS
  5. DEPO-PROVERA [Suspect]
     Active Substance: MEDROXYPROGESTERONE ACETATE
     Indication: PAIN PROPHYLAXIS
     Dosage: EVERY 3 MONTHS GIVEN INTO/UNDER THE SKIN
     Route: 058
     Dates: start: 20151005, end: 20151222

REACTIONS (8)
  - Tremor [None]
  - Abasia [None]
  - Economic problem [None]
  - Respiratory rate increased [None]
  - Educational problem [None]
  - Paraesthesia [None]
  - Syncope [None]
  - Hypoaesthesia [None]

NARRATIVE: CASE EVENT DATE: 20151019
